FAERS Safety Report 9192886 (Version 1)
Quarter: 2013Q1

REPORT INFORMATION
  Report Type: Spontaneous
  Country: US (occurrence: None)
  Receive Date: 20130325
  Receipt Date: 20130325
  Transmission Date: 20140127
  Serious: Yes (Other)
  Sender: FDA-Public Use
  Company Number: 2013-04744

PATIENT
  Age: 11 Year
  Sex: Male

DRUGS (5)
  1. CLONIDINE [Suspect]
     Indication: SOMATOTROPIN STIMULATION TEST
  2. ARGININE [Suspect]
     Indication: SOMATOTROPIN STIMULATION TEST
     Dosage: OVER  45 MINUTES
     Route: 042
  3. METHYLPHENIDATE (METHYLPHENIDATE) [Concomitant]
  4. VALSARTAN (VALSARTAN) [Concomitant]
  5. CYPROHEPTADINE?/00042702/ (CYPROHEPTADINE HYDROCHLORIDE) [Concomitant]

REACTIONS (2)
  - Haematuria [None]
  - Hypotension [None]
